FAERS Safety Report 14127077 (Version 1)
Quarter: 2017Q4

REPORT INFORMATION
  Report Type: Spontaneous
  Country: JP (occurrence: JP)
  Receive Date: 20171026
  Receipt Date: 20171026
  Transmission Date: 20180321
  Serious: Yes (Other)
  Sender: FDA-Public Use
  Company Number: JP-ROCHE-2011946

PATIENT
  Age: 33 Year
  Sex: Male

DRUGS (1)
  1. RHUMAB-E25 [Suspect]
     Active Substance: OMALIZUMAB
     Indication: ASTHMA
     Dosage: 300 MG, UNK
     Route: 058

REACTIONS (1)
  - Sudden hearing loss [Unknown]
